FAERS Safety Report 23574713 (Version 1)
Quarter: 2024Q1

REPORT INFORMATION
  Report Type: Spontaneous
  Country: PL (occurrence: None)
  Receive Date: 20240228
  Receipt Date: 20240228
  Transmission Date: 20240409
  Serious: Yes (Other)
  Sender: FDA-Public Use
  Company Number: PL-ROCHE-3514467

PATIENT
  Age: 65 Year
  Sex: Male

DRUGS (9)
  1. RITUXIMAB [Suspect]
     Active Substance: RITUXIMAB
     Indication: Diffuse large B-cell lymphoma recurrent
     Route: 041
     Dates: end: 20220621
  2. POLATUZUMAB VEDOTIN [Suspect]
     Active Substance: POLATUZUMAB VEDOTIN
     Indication: Diffuse large B-cell lymphoma recurrent
     Route: 065
     Dates: start: 20230823, end: 20230824
  3. CYCLOPHOSPHAMIDE [Suspect]
     Active Substance: CYCLOPHOSPHAMIDE
     Indication: Diffuse large B-cell lymphoma recurrent
     Route: 065
     Dates: start: 20240111, end: 20240113
  4. DOXORUBICIN [Suspect]
     Active Substance: DOXORUBICIN
     Indication: Diffuse large B-cell lymphoma recurrent
     Route: 065
     Dates: start: 20211223, end: 20220621
  5. PREDNISONE [Suspect]
     Active Substance: PREDNISONE
     Indication: Diffuse large B-cell lymphoma recurrent
     Route: 065
  6. BENDAMUSTINE [Suspect]
     Active Substance: BENDAMUSTINE
     Indication: Diffuse large B-cell lymphoma recurrent
     Route: 065
     Dates: start: 20230823, end: 20230824
  7. DEXAMETHASONE [Suspect]
     Active Substance: DEXAMETHASONE
     Indication: Diffuse large B-cell lymphoma recurrent
     Route: 042
     Dates: start: 20211126, end: 20211129
  8. CISPLATIN [Suspect]
     Active Substance: CISPLATIN
     Indication: Diffuse large B-cell lymphoma recurrent
     Route: 065
  9. CYTARABINE [Suspect]
     Active Substance: CYTARABINE
     Indication: Diffuse large B-cell lymphoma recurrent
     Route: 065

REACTIONS (7)
  - Diarrhoea [Unknown]
  - Pyrexia [Unknown]
  - Thrombocytopenia [Unknown]
  - Renal impairment [Unknown]
  - Disease progression [Unknown]
  - Neutropenia [Unknown]
  - COVID-19 [Unknown]

NARRATIVE: CASE EVENT DATE: 20220729
